FAERS Safety Report 15423993 (Version 1)
Quarter: 2018Q3

REPORT INFORMATION
  Report Type: Spontaneous
  Country: US (occurrence: US)
  Receive Date: 20180925
  Receipt Date: 20180925
  Transmission Date: 20181010
  Serious: No
  Sender: FDA-Public Use
  Company Number: US-TEVA-2018-US-957223

PATIENT
  Sex: Female

DRUGS (2)
  1. SYNRIBO [Suspect]
     Active Substance: OMACETAXINE MEPESUCCINATE
     Dosage: 3.8 MILLIGRAM DAILY;
     Route: 065
     Dates: start: 20180913
  2. ACIPHEX [Concomitant]
     Active Substance: RABEPRAZOLE SODIUM

REACTIONS (3)
  - Pain [Unknown]
  - Flatulence [Unknown]
  - Nausea [Unknown]
